FAERS Safety Report 6317283-3 (Version None)
Quarter: 2009Q3

REPORT INFORMATION
  Report Type: 
  Country: None (occurrence: None)
  Receive Date: 20090821
  Receipt Date: 20090812
  Transmission Date: 20100115
  Serious: Yes (Other)
  Sender: FDA-Public Use
  Company Number: CA-WYE-G04233109

PATIENT
  Age: 66 Year
  Sex: Male

DRUGS (2)
  1. TIGECYCLINE [Suspect]
     Indication: POST PROCEDURAL INFECTION
     Route: 042
     Dates: start: 20090805, end: 20090805
  2. TIGECYCLINE [Suspect]
     Route: 042
     Dates: start: 20090806, end: 20090810

REACTIONS (5)
  - ABDOMINAL PAIN [None]
  - LIPASE INCREASED [None]
  - NAUSEA [None]
  - PANCREATITIS [None]
  - VOMITING [None]
